FAERS Safety Report 5739675-3 (Version None)
Quarter: 2008Q2

REPORT INFORMATION
  Report Type: 
  Country: None (occurrence: None)
  Receive Date: 20080513
  Receipt Date: 20080428
  Transmission Date: 20081010
  Serious: Yes (Death)
  Sender: FDA-Public Use
  Company Number: TCI2008A02149

PATIENT
  Age: 78 Year
  Sex: Male

DRUGS (1)
  1. LEUPROLIDE ACETATE [Suspect]
     Indication: PROSTATE CANCER STAGE III
     Dosage: 11.25 MG (11.25 MG, 1 IN 12 WK), SUBCUTANEOUS
     Route: 058
     Dates: start: 20051216, end: 20060825

REACTIONS (1)
  - ACUTE RESPIRATORY FAILURE [None]
